FAERS Safety Report 5204454-2 (Version None)
Quarter: 2007Q1

REPORT INFORMATION
  Report Type: 
  Country: None (occurrence: None)
  Receive Date: 20070110
  Receipt Date: 20061101
  Transmission Date: 20070707
  Serious: Yes (Hospitalization, Disabling, Other)
  Sender: FDA-Public Use
  Company Number: US-PFIZER INC-2006134176

PATIENT
  Sex: Male
  Weight: 79.4 kg

DRUGS (8)
  1. VIAGRA [Suspect]
     Indication: ERECTILE DYSFUNCTION
  2. METHAMPHETAMINE HYDROCHLORIDE [Suspect]
  3. ANTIHYPERTENSIVES [Concomitant]
  4. LANTUS [Concomitant]
  5. GLIPIZIDE [Concomitant]
  6. METFORMIN HCL [Concomitant]
  7. VITAMIN CAP [Concomitant]
  8. ALL OTHER THERAPEUTIC PRODUCTS [Concomitant]

REACTIONS (6)
  - ANXIETY DISORDER [None]
  - BLINDNESS [None]
  - HYPERTENSION [None]
  - IMMUNOSUPPRESSION [None]
  - MENINGITIS VIRAL [None]
  - OPTIC NERVE INJURY [None]
